FAERS Safety Report 8505359-1 (Version None)
Quarter: 2012Q3

REPORT INFORMATION
  Report Type: 
  Country: None (occurrence: None)
  Receive Date: 20120712
  Receipt Date: 20120706
  Transmission Date: 20120928
  Serious: Yes (Death, Hospitalization)
  Sender: FDA-Public Use
  Company Number: ES-CELGENEUS-144-CCAZA-12063882

PATIENT
  Sex: Male
  Weight: 56.9 kg

DRUGS (3)
  1. AZACITIDINE [Suspect]
     Dosage: 75 MILLIGRAM/SQ. METER
     Route: 058
     Dates: start: 20120608, end: 20120614
  2. VORICONAZOLE [Concomitant]
     Route: 065
     Dates: end: 20120703
  3. POSACONAZOLE [Concomitant]
     Route: 065
     Dates: start: 20120703

REACTIONS (1)
  - DEATH [None]
